FAERS Safety Report 26106141 (Version 1)
Quarter: 2025Q4

REPORT INFORMATION
  Report Type: Spontaneous
  Country: JP (occurrence: JP)
  Receive Date: 20251201
  Receipt Date: 20251201
  Transmission Date: 20260117
  Serious: Yes (Other)
  Sender: ROCHE
  Company Number: JP-ROCHE-10000444740

PATIENT
  Age: 72 Year
  Sex: Male

DRUGS (6)
  1. RITUXIMAB [Suspect]
     Active Substance: RITUXIMAB
     Indication: Castleman^s disease
     Route: 042
  2. TOCILIZUMAB [Suspect]
     Active Substance: TOCILIZUMAB
     Indication: Castleman^s disease
     Route: 042
  3. PREDNISOLONE [Suspect]
     Active Substance: PREDNISOLONE
     Indication: Castleman^s disease
     Route: 065
  4. CYCLOPHOSPHAMIDE [Concomitant]
     Active Substance: CYCLOPHOSPHAMIDE
  5. DOXORUBICIN [Concomitant]
     Active Substance: DOXORUBICIN
  6. VINCRISTINE [Concomitant]
     Active Substance: VINCRISTINE

REACTIONS (3)
  - Anaphylactic reaction [Unknown]
  - COVID-19 [Unknown]
  - Interstitial lung disease [Unknown]
